FAERS Safety Report 23935409 (Version 1)
Quarter: 2024Q2

REPORT INFORMATION
  Report Type: Spontaneous
  Country: US (occurrence: US)
  Receive Date: 20240604
  Receipt Date: 20240604
  Transmission Date: 20240716
  Serious: No
  Sender: FDA-Public Use
  Company Number: US-STERISCIENCE B.V.-2024-ST-000251

PATIENT
  Age: 49 Year
  Sex: Male

DRUGS (1)
  1. METOPROLOL [Suspect]
     Active Substance: METOPROLOL
     Indication: Hypertension
     Dosage: UNK
     Route: 065

REACTIONS (1)
  - Parasomnia [Recovered/Resolved]
